FAERS Safety Report 6555020-8 (Version None)
Quarter: 2010Q1

REPORT INFORMATION
  Report Type: 
  Country: None (occurrence: None)
  Receive Date: 20100126
  Receipt Date: 20100126
  Transmission Date: 20100710
  Serious: Yes (Other)
  Sender: FDA-Public Use
  Company Number: None

PATIENT
  Age: 30 Year
  Sex: Female
  Weight: 90.7194 kg

DRUGS (1)
  1. BENADRYL [Suspect]
     Indication: PAIN OF SKIN
     Dosage: USED ONCE

REACTIONS (7)
  - BURNING SENSATION [None]
  - COUGH [None]
  - DYSPHAGIA [None]
  - DYSPNOEA [None]
  - LACRIMATION INCREASED [None]
  - RHINORRHOEA [None]
  - SKIN REACTION [None]
